FAERS Safety Report 9240755 (Version 1)
Quarter: 2013Q1

REPORT INFORMATION
  Report Type: Spontaneous
  Country: US (occurrence: None)
  Receive Date: 20121120
  Receipt Date: 20121120
  Transmission Date: 20140127
  Serious: No
  Sender: FDA-Public Use
  Company Number: 1000038992

PATIENT
  Age: 37 Year
  Sex: Female

DRUGS (8)
  1. VIIBRYD [Suspect]
     Indication: DEPRESSION
     Route: 048
     Dates: start: 201207, end: 2012
  2. VIIBRYD [Suspect]
     Indication: DEPRESSION
     Route: 048
     Dates: start: 2012, end: 201209
  3. VIIBRYD [Suspect]
     Indication: DEPRESSION
     Route: 048
     Dates: start: 201209, end: 201209
  4. LAMICTAL (LAMOTRIGINE) (LAMOTRIGINE) [Concomitant]
  5. ADDERALL (OBETROL)-(OBETROL) [Concomitant]
  6. SYNTHROID (LEVOTHYROXINE SODIUM) (LEVOTHYROXINE SODIUM) [Concomitant]
  7. COUMADIN (WARFARIN) (WARFARIN) [Concomitant]
  8. ABILIFY (ARIPIPRAZOLE (ARIPIPRAZOLE) [Concomitant]

REACTIONS (6)
  - Lip disorder [None]
  - Tongue disorder [None]
  - Dyskinesia [None]
  - Unevaluable event [None]
  - Restlessness [None]
  - Muscle twitching [None]
